FAERS Safety Report 9142968 (Version 1)
Quarter: 2013Q1

REPORT INFORMATION
  Report Type: Spontaneous
  Country: US (occurrence: US)
  Receive Date: 20130306
  Receipt Date: 20130306
  Transmission Date: 20140127
  Serious: No
  Sender: FDA-Public Use
  Company Number: US-PFIZER INC-2013072299

PATIENT
  Age: 41 Year
  Sex: Female
  Weight: 63.49 kg

DRUGS (2)
  1. AZITHROMYCIN [Suspect]
     Indication: PERTUSSIS
     Dosage: 500 MG (BY TAKING 2 TABLETS AT ONCE), 1X/DAY
     Dates: start: 20130225
  2. SACCHAROMYCES BOULARDII [Concomitant]
     Dosage: UNK

REACTIONS (4)
  - Cough [Unknown]
  - Abdominal discomfort [Unknown]
  - Constipation [Unknown]
  - Off label use [Unknown]
